FAERS Safety Report 19680296 (Version 1)
Quarter: 2021Q3

REPORT INFORMATION
  Report Type: Spontaneous
  Country: US (occurrence: US)
  Receive Date: 20210810
  Receipt Date: 20210810
  Transmission Date: 20211014
  Serious: Yes (Hospitalization)
  Sender: FDA-Public Use
  Company Number: None

PATIENT
  Sex: Female
  Weight: 66.15 kg

DRUGS (20)
  1. COLESTID [Concomitant]
     Active Substance: COLESTIPOL HYDROCHLORIDE
  2. REMERON SOLTAB [Concomitant]
     Active Substance: MIRTAZAPINE
  3. XELODA [Concomitant]
     Active Substance: CAPECITABINE
  4. ACETAMINOPHEN. [Concomitant]
     Active Substance: ACETAMINOPHEN
  5. DIOVAN [Concomitant]
     Active Substance: VALSARTAN
  6. LANOXIN [Concomitant]
     Active Substance: DIGOXIN
  7. CAPECITABINE. [Suspect]
     Active Substance: CAPECITABINE
     Indication: ANAL CANCER
     Dosage: ?          OTHER FREQUENCY:BID 14/21 DAYS;?
     Route: 048
     Dates: start: 20210607
  8. OMEGA 3 EPA + DHA [Concomitant]
  9. TOVIAZ [Concomitant]
     Active Substance: FESOTERODINE FUMARATE
  10. XARELTO [Concomitant]
     Active Substance: RIVAROXABAN
  11. ZETIA [Concomitant]
     Active Substance: EZETIMIBE
  12. SYNTHROID [Concomitant]
     Active Substance: LEVOTHYROXINE SODIUM
  13. CALCIUM CARBONATE + D3 [Concomitant]
  14. ISOSORBIDE. [Concomitant]
     Active Substance: ISOSORBIDE
  15. LECITHIN [Concomitant]
     Active Substance: LECITHIN
  16. LYSINE [Concomitant]
     Active Substance: LYSINE
  17. MULTIVITAMIN/MINERALS/LUTEIN [Concomitant]
  18. NORVASC [Concomitant]
     Active Substance: AMLODIPINE BESYLATE
  19. ASPIRIN. [Concomitant]
     Active Substance: ASPIRIN
  20. BYSTOLIC [Concomitant]
     Active Substance: NEBIVOLOL HYDROCHLORIDE

REACTIONS (2)
  - Diarrhoea [None]
  - Vomiting [None]
